FAERS Safety Report 12947196 (Version 1)
Quarter: 2016Q4

REPORT INFORMATION
  Report Type: Spontaneous
  Country: US (occurrence: US)
  Receive Date: 20161116
  Receipt Date: 20161116
  Transmission Date: 20170207
  Serious: Yes (Disabling, Other)
  Sender: FDA-Public Use
  Company Number: None

PATIENT
  Age: 42 Year
  Sex: Male
  Weight: 72.64 kg

DRUGS (13)
  1. CORDYCEPOS [Concomitant]
  2. LITHIUM ASPARTATE [Concomitant]
     Active Substance: LITHIUM ASPARTATE
  3. CELL SALTS [Concomitant]
  4. MELATONIN [Concomitant]
     Active Substance: MELATONIN
  5. LITHIUM OROTATE [Concomitant]
     Active Substance: LITHIUM OROTATE
  6. GINKY BILOBA EXTRACT [Concomitant]
  7. MAGNESIUM L-THEO NATE [Concomitant]
  8. LITHIUM CARBONATE BRISTOL-MYERS [Suspect]
     Active Substance: LITHIUM CARBONATE
     Indication: ANXIETY
     Dosage: 2 PILLS 1 DAILY, MOUTH
     Route: 048
     Dates: start: 20160808, end: 20160909
  9. DHA [Concomitant]
     Active Substance: DIETARY SUPPLEMENT
  10. GABA [Concomitant]
     Active Substance: .GAMMA.-AMINOBUTYRIC ACID
  11. MULTI-VITAMIN-MINERALS [Concomitant]
  12. 22 AMINO ACIDS COMPLEX [Concomitant]
  13. LITHIUM CARBONATE BRISTOL-MYERS [Suspect]
     Active Substance: LITHIUM CARBONATE
     Indication: INSOMNIA
     Dosage: 2 PILLS 1 DAILY, MOUTH
     Route: 048
     Dates: start: 20160808, end: 20160909

REACTIONS (5)
  - Gastrooesophageal reflux disease [None]
  - Abdominal discomfort [None]
  - Helicobacter infection [None]
  - Vomiting [None]
  - Constipation [None]

NARRATIVE: CASE EVENT DATE: 20160907
